FAERS Safety Report 20919530 (Version 1)
Quarter: 2022Q2

REPORT INFORMATION
  Report Type: Report from Study
  Country: AR (occurrence: AR)
  Receive Date: 20220606
  Receipt Date: 20220606
  Transmission Date: 20220721
  Serious: Yes (Other)
  Sender: FDA-Public Use
  Company Number: AR-NOVARTISPH-NVSC2022AR128726

PATIENT
  Sex: Female

DRUGS (1)
  1. TRILEPTAL [Suspect]
     Active Substance: OXCARBAZEPINE
     Indication: Seizure
     Dosage: 2 DOSAGE FORM, QD (STARTED 9 YEARS AGO)
     Route: 065

REACTIONS (5)
  - Diabetes mellitus [Unknown]
  - Petit mal epilepsy [Unknown]
  - Syncope [Unknown]
  - Headache [Unknown]
  - Abdominal discomfort [Unknown]
